FAERS Safety Report 7799555-9 (Version None)
Quarter: 2011Q4

REPORT INFORMATION
  Report Type: 
  Country: None (occurrence: None)
  Receive Date: 20111006
  Receipt Date: 20111006
  Transmission Date: 20120403
  Serious: Yes (Other)
  Sender: FDA-Public Use
  Company Number: None

PATIENT
  Age: 59 Year
  Sex: Male
  Weight: 64.41 kg

DRUGS (1)
  1. VYTORIN [Suspect]
     Indication: BLOOD CHOLESTEROL INCREASED
     Dosage: 1TAB
     Route: 048
     Dates: start: 20100801, end: 20110601

REACTIONS (3)
  - VISUAL IMPAIRMENT [None]
  - DEHYDRATION [None]
  - HEADACHE [None]
